FAERS Safety Report 19911691 (Version 2)
Quarter: 2021Q4

REPORT INFORMATION
  Report Type: Spontaneous
  Country: KR (occurrence: KR)
  Receive Date: 20211004
  Receipt Date: 20211008
  Transmission Date: 20220303
  Serious: Yes (Other)
  Sender: FDA-Public Use
  Company Number: KR-GLAXOSMITHKLINE-KR2021APC203156

PATIENT
  Age: 40 Year
  Sex: Male
  Weight: 63.7 kg

DRUGS (36)
  1. KIVEXA [Suspect]
     Active Substance: ABACAVIR SULFATE\LAMIVUDINE
     Indication: HIV infection
     Dosage: 1 MG
     Route: 048
     Dates: start: 20140315
  2. AZELASTINE. [Suspect]
     Active Substance: AZELASTINE HYDROCHLORIDE
     Indication: Rash
     Dosage: UNK
     Route: 048
     Dates: start: 20140315, end: 20140326
  3. RITONAVIR [Suspect]
     Active Substance: RITONAVIR
     Indication: HIV infection
     Dosage: UNK
     Route: 048
     Dates: start: 20140315
  4. DARUNAVIR [Suspect]
     Active Substance: DARUNAVIR
     Indication: HIV infection
     Dosage: UNK
     Route: 048
     Dates: start: 20140315
  5. FAMOTIDINE [Suspect]
     Active Substance: FAMOTIDINE
     Indication: Prophylaxis
     Dosage: UNK SUGAR COATED TABLET
     Route: 048
     Dates: start: 20140315
  6. SULFAMETHOXAZOLE\TRIMETHOPRIM [Suspect]
     Active Substance: SULFAMETHOXAZOLE\TRIMETHOPRIM
     Indication: Prophylaxis
     Dosage: UNK PLAIN TABLET
     Route: 048
     Dates: start: 20140315
  7. ACETYLCARNITINE [Concomitant]
     Active Substance: ACETYLCARNITINE
     Indication: Encephalitis
     Dosage: UNK (TABLET FILM COATED DELAYED  RELEASE)
     Route: 048
     Dates: start: 20140325
  8. ACETYLCARNITINE [Concomitant]
     Active Substance: ACETYLCARNITINE
     Indication: Myelitis
  9. ACETYLCARNITINE [Concomitant]
     Active Substance: ACETYLCARNITINE
     Indication: Encephalomyelitis
  10. AMBROXOL [Concomitant]
     Active Substance: AMBROXOL
     Indication: Pneumonia
     Dosage: UNK
     Route: 042
     Dates: start: 20140629, end: 20140707
  11. BACLOFEN [Concomitant]
     Active Substance: BACLOFEN
     Indication: Muscle disorder
     Dosage: UNK PLAIN TABLET
     Route: 048
     Dates: start: 20140620
  12. CEFEPIME [Concomitant]
     Active Substance: CEFEPIME HYDROCHLORIDE
     Indication: Pneumonia
     Dosage: UNK (INJECTION POWDER FOR SOLUTION)
     Route: 042
     Dates: start: 20140630, end: 20140709
  13. CEFTRIAXONE [Concomitant]
     Active Substance: CEFTRIAXONE
     Indication: Pneumonia
     Dosage: UNK (INJECTION POWDER FOR SOLUTION)
     Route: 042
     Dates: start: 20140710, end: 20140715
  14. CHOLINE ALFOSCERATE [Concomitant]
     Active Substance: CHOLINE ALFOSCERATE
     Indication: Prophylaxis
     Dosage: UNK(CAPSULE SOFT SOLUTION FILLED)
     Route: 048
     Dates: start: 20140402, end: 20140416
  15. CHOLINE ALFOSCERATE [Concomitant]
     Active Substance: CHOLINE ALFOSCERATE
     Indication: Encephalitis
     Dosage: UNK
     Dates: start: 20140402, end: 20140402
  16. CHOLINE ALFOSCERATE [Concomitant]
     Active Substance: CHOLINE ALFOSCERATE
     Indication: Myelitis
  17. CHOLINE ALFOSCERATE [Concomitant]
     Active Substance: CHOLINE ALFOSCERATE
     Indication: Encephalomyelitis
  18. CLINDAMYCIN [Concomitant]
     Active Substance: CLINDAMYCIN
     Indication: Pneumonia
     Dosage: UNK(INJECTION SOLUTION)
     Route: 042
     Dates: start: 20140630, end: 20140708
  19. CLONAZEPAM [Concomitant]
     Active Substance: CLONAZEPAM
     Indication: Encephalitis
     Dosage: UNK
     Route: 048
     Dates: start: 20140623
  20. CLONAZEPAM [Concomitant]
     Active Substance: CLONAZEPAM
     Indication: Myelitis
  21. CLONAZEPAM [Concomitant]
     Active Substance: CLONAZEPAM
     Indication: Encephalomyelitis
  22. DEXAMETHASONE [Concomitant]
     Active Substance: DEXAMETHASONE
     Indication: Encephalitis
     Dosage: UNK
     Route: 048
     Dates: start: 20140620, end: 20140705
  23. DEXAMETHASONE [Concomitant]
     Active Substance: DEXAMETHASONE
     Indication: Myelitis
  24. DEXAMETHASONE [Concomitant]
     Active Substance: DEXAMETHASONE
     Indication: Encephalomyelitis
  25. DIOSMIN (DIOSMIN + HESPERIDIN) [Concomitant]
     Indication: Haemorrhoids
     Dosage: UNK
     Route: 048
     Dates: start: 20140402, end: 20140406
  26. EPERISONE [Concomitant]
     Active Substance: EPERISONE
     Indication: Muscle disorder
     Dosage: UNK SUGAR COATED TABLET
     Route: 048
     Dates: start: 20140620
  27. FLUCONAZOLE [Concomitant]
     Active Substance: FLUCONAZOLE
     Indication: Candida infection
     Dosage: UNK CAPSULE HARD POWDER
     Route: 048
     Dates: start: 20140401, end: 20140415
  28. GALANTAMINE [Concomitant]
     Active Substance: GALANTAMINE
     Indication: Encephalitis
     Dosage: UNK CAPSULE, EXTENDED RELEASE, PELLETS
     Route: 048
     Dates: start: 20140415
  29. GALANTAMINE [Concomitant]
     Active Substance: GALANTAMINE
     Indication: Myelitis
  30. GALANTAMINE [Concomitant]
     Active Substance: GALANTAMINE
     Indication: Encephalomyelitis
  31. GANCICLOVIR [Concomitant]
     Active Substance: GANCICLOVIR
     Indication: Cytomegalovirus infection
     Dosage: UNK
     Dates: start: 20140325, end: 20140407
  32. LEVETIRACETAM [Concomitant]
     Active Substance: LEVETIRACETAM
     Indication: Encephalitis
     Dosage: UNK
     Route: 048
     Dates: start: 20140622
  33. LEVETIRACETAM [Concomitant]
     Active Substance: LEVETIRACETAM
     Indication: Myelitis
     Dosage: UNK
     Route: 048
     Dates: start: 20140325, end: 20140621
  34. LEVETIRACETAM [Concomitant]
     Active Substance: LEVETIRACETAM
     Indication: Encephalomyelitis
  35. LORAZEPAM [Concomitant]
     Active Substance: LORAZEPAM
     Indication: Muscle disorder
     Dosage: UNK
     Route: 042
     Dates: start: 20140623, end: 20140623
  36. URSODIOL [Concomitant]
     Active Substance: URSODIOL
     Indication: Prophylaxis
     Dosage: UNK, PLAIN TABLET
     Route: 048
     Dates: start: 20140625, end: 20140720

REACTIONS (3)
  - Hypokalaemia [Recovered/Resolved]
  - Diarrhoea [Recovered/Resolved]
  - Hypoalbuminaemia [Recovered/Resolved]

NARRATIVE: CASE EVENT DATE: 20140707
